FAERS Safety Report 7642602-5 (Version None)
Quarter: 2011Q3

REPORT INFORMATION
  Report Type: 
  Country: None (occurrence: None)
  Receive Date: 20110728
  Receipt Date: 20110723
  Transmission Date: 20111222
  Serious: Yes (Hospitalization, Other)
  Sender: FDA-Public Use
  Company Number: AU-PFIZER INC-AU-WYE-G05185409

PATIENT
  Age: 48 Year
  Sex: Female
  Weight: 80 kg

DRUGS (7)
  1. LIPITOR [Concomitant]
     Route: 065
  2. DI-GESIC [Concomitant]
     Route: 065
  3. EFFEXOR XR [Suspect]
     Dosage: 150 MG, UNK
     Route: 065
  4. VARENICLINE TARTRATE [Interacting]
     Dosage: 1 DOSE UNSPECIFIED DAILY
     Route: 065
     Dates: start: 20091006
  5. NEXIUM [Concomitant]
     Route: 065
  6. SEROQUEL [Interacting]
     Dosage: 900 MG, UNK
     Route: 065
  7. TRAMADOL HCL [Interacting]
     Dosage: 400 MG, 1X/DAY
     Route: 065
     Dates: start: 20091006

REACTIONS (7)
  - TONGUE BITING [None]
  - SOMNOLENCE [None]
  - DRUG INTERACTION [None]
  - CONVULSION [None]
  - URINARY INCONTINENCE [None]
  - MALAISE [None]
  - DIZZINESS [None]
